FAERS Safety Report 10719586 (Version 2)
Quarter: 2015Q1

REPORT INFORMATION
  Report Type: Spontaneous
  Country: US (occurrence: US)
  Receive Date: 20150119
  Receipt Date: 20150119
  Transmission Date: 20150721
  Serious: Yes (Other)
  Sender: FDA-Public Use
  Company Number: US-UNITED THERAPEUTICS-UNT-2014-010513

PATIENT
  Sex: Female
  Weight: 61.22 kg

DRUGS (1)
  1. REMODULIN [Suspect]
     Active Substance: TREPROSTINIL
     Indication: PULMONARY HYPERTENSION
     Dosage: 0.075 ?G/KG, CONTINUING
     Route: 041
     Dates: start: 20040510

REACTIONS (4)
  - Injection site pain [Unknown]
  - Device related infection [Unknown]
  - Injection site erythema [Unknown]
  - Injection site oedema [Unknown]

NARRATIVE: CASE EVENT DATE: 2014
